FAERS Safety Report 9068428 (Version 2)
Quarter: 2013Q1

REPORT INFORMATION
  Report Type: Spontaneous
  Country: US (occurrence: US)
  Receive Date: 20130206
  Receipt Date: 20130319
  Transmission Date: 20140127
  Serious: No
  Sender: FDA-Public Use
  Company Number: US-TEVA-384056USA

PATIENT
  Sex: Male

DRUGS (1)
  1. QVAR [Suspect]
     Dates: start: 201211

REACTIONS (3)
  - Dry throat [Recovered/Resolved]
  - Larynx irritation [Recovered/Resolved]
  - Dysphonia [Unknown]
